FAERS Safety Report 12231136 (Version 1)
Quarter: 2016Q2

REPORT INFORMATION
  Report Type: Other
  Country: GB (occurrence: GB)
  Receive Date: 20160401
  Receipt Date: 20160401
  Transmission Date: 20160815
  Serious: Yes (Life-Threatening, Hospitalization)
  Sender: FDA-Public Use
  Company Number: GB-MYLANLABS-2016M1012768

PATIENT

DRUGS (19)
  1. HYLO TEAR [Concomitant]
     Dosage: 2 GTT, Q4H (1 DROP INTO EACH EYE)
     Dates: start: 20160128
  2. TRAMADOL. [Suspect]
     Active Substance: TRAMADOL
     Dosage: UNK
     Dates: start: 20150918
  3. DULOXETINE. [Concomitant]
     Active Substance: DULOXETINE
     Dosage: 1 DF, QD
     Dates: start: 20150518
  4. ORAMORPH [Concomitant]
     Active Substance: MORPHINE SULFATE
     Dosage: 5 ML, UNK
     Dates: start: 20150518, end: 20160314
  5. SERETIDE [Concomitant]
     Active Substance: FLUTICASONE PROPIONATE\SALMETEROL XINAFOATE
     Dosage: 2 DF, BID
     Dates: start: 20150518
  6. ZOMORPH [Concomitant]
     Active Substance: MORPHINE SULFATE
     Dosage: 1 DF, BID
     Dates: start: 20150518
  7. SALBUTAMOL [Concomitant]
     Active Substance: ALBUTEROL
     Dosage: 2 DF, UNK (FOUR TIMES A DAY)
     Dates: start: 20150518
  8. OMEPRAZOLE. [Concomitant]
     Active Substance: OMEPRAZOLE
     Dosage: 1 DF, QD
     Dates: start: 20150518
  9. SENNA                              /00142201/ [Concomitant]
     Active Substance: SENNA LEAF
     Indication: CONSTIPATION
     Dosage: UNK (TAKE ONE OR TWO AT NIGHT)
     Dates: start: 20150518
  10. AMITRIPTYLINE HYDROCHLORIDE. [Concomitant]
     Active Substance: AMITRIPTYLINE HYDROCHLORIDE
     Dosage: 4 DF, QD (AT NIGHT)
     Dates: start: 20150518
  11. AZATHIOPRINE. [Concomitant]
     Active Substance: AZATHIOPRINE
     Dosage: 3 DF, QD (INCREASING TO 3 DAILY AS DIRECTED)
     Dates: start: 20150518
  12. CALCICHEW D3 [Concomitant]
     Active Substance: CALCIUM\CHOLECALCIFEROL
     Dosage: 1 DF, BID
     Dates: start: 20150518
  13. DICLOFENAC SODIUM. [Concomitant]
     Active Substance: DICLOFENAC SODIUM
     Dosage: AS DIRECTED
     Dates: start: 20150518
  14. LACTULOSE. [Concomitant]
     Active Substance: LACTULOSE
     Dosage: 5 ML, BID
     Dates: start: 20150518
  15. LEVOTHYROXINE. [Concomitant]
     Active Substance: LEVOTHYROXINE
     Dosage: 1 DF, QD (EACH MORNING)
     Dates: start: 20150518
  16. LISINOPRIL. [Concomitant]
     Active Substance: LISINOPRIL
     Indication: HYPERTENSION
     Dosage: 1 DF, QD (EVERY MORNING)
     Dates: start: 20150518
  17. GABAPENTIN. [Concomitant]
     Active Substance: GABAPENTIN
     Dosage: 300 MG, TID
     Dates: start: 20150518
  18. PARACETAMOL [Concomitant]
     Active Substance: ACETAMINOPHEN
     Dosage: ONE TO TWO TO BE TAKEN FOUR TIMES A DAY
     Dates: start: 20150518
  19. PREDNISOLONE. [Concomitant]
     Active Substance: PREDNISOLONE
     Dosage: REDUCING DOSE (REDUCE BY 0.5MG PER MONTH)
     Dates: start: 20150716

REACTIONS (2)
  - Acute kidney injury [Recovered/Resolved with Sequelae]
  - Sepsis [Recovered/Resolved with Sequelae]

NARRATIVE: CASE EVENT DATE: 20160314
